FAERS Safety Report 5860873-2 (Version None)
Quarter: 2008Q3

REPORT INFORMATION
  Report Type: 
  Country: None (occurrence: None)
  Receive Date: 20080827
  Receipt Date: 20071219
  Transmission Date: 20090109
  Serious: No
  Sender: FDA-Public Use
  Company Number: US-ABBOTT-07P-163-0431243-00

PATIENT
  Sex: Male
  Weight: 61.744 kg

DRUGS (4)
  1. COATED PDS [Suspect]
     Indication: BLOOD CHOLESTEROL INCREASED
     Route: 048
     Dates: start: 20071217
  2. VITAMIN TAB [Concomitant]
     Indication: DRUG USE FOR UNKNOWN INDICATION
     Route: 048
  3. LOVAZA [Concomitant]
     Indication: BLOOD CHOLESTEROL ABNORMAL
  4. XYLANTIN [Concomitant]
     Indication: INTRAOCULAR PRESSURE INCREASED
     Route: 047

REACTIONS (1)
  - INFLUENZA LIKE ILLNESS [None]
